FAERS Safety Report 13760385 (Version 1)
Quarter: 2017Q3

REPORT INFORMATION
  Report Type: Spontaneous
  Country: US (occurrence: US)
  Receive Date: 20170717
  Receipt Date: 20170717
  Transmission Date: 20171127
  Serious: No
  Sender: FDA-Public Use
  Company Number: US-LEXICON PHARMACEUTICALS, INC-17-1606-00461

PATIENT
  Age: 62 Year
  Sex: Male

DRUGS (21)
  1. COLCHICINE. [Concomitant]
     Active Substance: COLCHICINE
  2. CRESTOR [Concomitant]
     Active Substance: ROSUVASTATIN CALCIUM
  3. FROVA [Concomitant]
     Active Substance: FROVATRIPTAN SUCCINATE
  4. LOVAZA [Concomitant]
     Active Substance: OMEGA-3-ACID ETHYL ESTERS
  5. NEXIUM [Concomitant]
     Active Substance: ESOMEPRAZOLE MAGNESIUM
  6. XYREM [Concomitant]
     Active Substance: SODIUM OXYBATE
  7. SANDOSTATIN [Concomitant]
     Active Substance: OCTREOTIDE ACETATE
  8. FLOMAX [Concomitant]
     Active Substance: TAMSULOSIN HYDROCHLORIDE
  9. ATENOLOL. [Concomitant]
     Active Substance: ATENOLOL
  10. DYMISTA [Concomitant]
     Active Substance: AZELASTINE HYDROCHLORIDE\FLUTICASONE PROPIONATE
  11. ALLEGRA [Concomitant]
     Active Substance: FEXOFENADINE HYDROCHLORIDE
  12. DEPO-TESTOSTERONE [Concomitant]
     Active Substance: TESTOSTERONE CYPIONATE
  13. VALIUM [Concomitant]
     Active Substance: DIAZEPAM
  14. MICARDIS [Concomitant]
     Active Substance: TELMISARTAN
  15. NOVOLIN [Concomitant]
     Active Substance: INSULIN HUMAN
  16. ZOFRAN [Concomitant]
     Active Substance: ONDANSETRON HYDROCHLORIDE
  17. TELOTRISTAT ETHYL [Suspect]
     Active Substance: TELOTRISTAT ETHYL
     Indication: CARCINOID SYNDROME
     Route: 048
     Dates: start: 20170606
  18. FUROSEMIDE. [Concomitant]
     Active Substance: FUROSEMIDE
  19. KLONOPIN [Concomitant]
     Active Substance: CLONAZEPAM
  20. NUVIGIL [Concomitant]
     Active Substance: ARMODAFINIL
  21. ULORIC [Concomitant]
     Active Substance: FEBUXOSTAT

REACTIONS (1)
  - Nausea [Recovered/Resolved]

NARRATIVE: CASE EVENT DATE: 201706
